FAERS Safety Report 8568974 (Version 2)
Quarter: 2012Q4

REPORT INFORMATION
  Report Type: 
  Country: IT (occurrence: IT)
  Receive Date: 20120518
  Receipt Date: 20121213
  Transmission Date: 20130627
  Serious: Yes (Other)
  Sender: FDA-Public Use
  Company Number: IT-EISAI INC-E7867-00265-SPO-IT

PATIENT
  Age: 14 Year
  Sex: Male

DRUGS (2)
  1. GLIADEL [Suspect]
     Indication: ANAPLASTIC EPENDYMOMA
  2. ETOPOSIDE [Suspect]
     Indication: ANAPLASTIC EPENDYMOMA
     Route: 065

REACTIONS (4)
  - Neoplasm recurrence [Unknown]
  - Hypotonia [Unknown]
  - Paraesthesia [Unknown]
  - Off label use [Unknown]
